FAERS Safety Report 20076927 (Version 1)
Quarter: 2021Q4

REPORT INFORMATION
  Report Type: Report from Study
  Country: US (occurrence: US)
  Receive Date: 20211116
  Receipt Date: 20211116
  Transmission Date: 20220303
  Serious: Yes (Other)
  Sender: FDA-Public Use
  Company Number: US-INCYTE CORPORATION-2021IN010613

PATIENT

DRUGS (7)
  1. JAKAFI [Suspect]
     Active Substance: RUXOLITINIB
     Indication: Myelofibrosis
     Dosage: 16 MILLIGRAM, BID
     Route: 065
  2. JAKAFI [Suspect]
     Active Substance: RUXOLITINIB
     Dosage: UNK (DOSE CHANGE 1)
     Route: 065
  3. JAKAFI [Suspect]
     Active Substance: RUXOLITINIB
     Dosage: UNK (DOSE CHANGE 2)
     Route: 065
  4. JAKAFI [Suspect]
     Active Substance: RUXOLITINIB
     Dosage: UNK (DOSE CHANGE 3)
     Route: 065
  5. JAKAFI [Suspect]
     Active Substance: RUXOLITINIB
     Dosage: UNK (DOSE CHANGE 4)
     Route: 065
  6. JAKAFI [Suspect]
     Active Substance: RUXOLITINIB
     Dosage: UNK (DOSE CHANGE 5)
     Route: 065
  7. JAKAFI [Suspect]
     Active Substance: RUXOLITINIB
     Dosage: UNK (DISCONTINUATION DOSE)
     Route: 065

REACTIONS (8)
  - Thrombocytopenia [Unknown]
  - Infection [Unknown]
  - Toxicity to various agents [Unknown]
  - Disturbance in attention [Unknown]
  - Early satiety [Unknown]
  - Fatigue [Unknown]
  - Bone pain [Unknown]
  - Wrong technique in product usage process [Unknown]
